FAERS Safety Report 8495247-1 (Version None)
Quarter: 2012Q3

REPORT INFORMATION
  Report Type: 
  Country: None (occurrence: None)
  Receive Date: 20120709
  Receipt Date: 20120704
  Transmission Date: 20120928
  Serious: Yes (Hospitalization)
  Sender: FDA-Public Use
  Company Number: JP-BAYER-2012-067768

PATIENT
  Age: 81 Year
  Sex: Male

DRUGS (6)
  1. NIFELAT L [Concomitant]
     Dosage: UNK
     Route: 048
     Dates: start: 20031001
  2. ASPIRIN [Suspect]
     Indication: CEREBELLAR INFARCTION
     Dosage: 100 MG, QD
     Route: 048
     Dates: start: 20031001, end: 20120703
  3. ATORVASTATIN [Concomitant]
     Dosage: UNK
     Route: 048
     Dates: start: 20031001
  4. LEUPROLIDE ACETATE [Concomitant]
     Dosage: UNK
     Route: 058
     Dates: start: 20031001
  5. ENALAPRIL MALEATE [Concomitant]
     Dosage: UNK
     Route: 048
     Dates: start: 20031001
  6. OMEPRAZOLE [Concomitant]
     Dosage: UNK
     Route: 048
     Dates: start: 20111001

REACTIONS (1)
  - ERYTHEMA MULTIFORME [None]
